FAERS Safety Report 8046857-7 (Version None)
Quarter: 2012Q1

REPORT INFORMATION
  Report Type: 
  Country: None (occurrence: None)
  Receive Date: 20120116
  Receipt Date: 20111230
  Transmission Date: 20120608
  Serious: Yes (Other)
  Sender: FDA-Public Use
  Company Number: BR-AMGEN-BRACT2011069924

PATIENT
  Age: 41 Year
  Sex: Female
  Weight: 79 kg

DRUGS (9)
  1. METHOTREXATE [Concomitant]
     Dosage: UNK
  2. CALCIUM [Concomitant]
     Dosage: UNK
  3. ATROPINE [Concomitant]
     Dosage: UNK
  4. LACRIMA PLUS [Concomitant]
     Dosage: UNK
  5. ENBREL [Suspect]
     Indication: RHEUMATOID ARTHRITIS
     Dosage: 50 MG, WEEKLY (1X/WEEK)
     Route: 058
     Dates: start: 20110526
  6. FOLIC ACID [Concomitant]
     Dosage: UNK
  7. PREDNISONE [Concomitant]
     Dosage: UNK
  8. LACRIBELL [Concomitant]
     Dosage: UNK
  9. LIPOSIC [Concomitant]
     Dosage: UNK

REACTIONS (4)
  - RETINAL DETACHMENT [None]
  - INJECTION SITE SWELLING [None]
  - INJECTION SITE PRURITUS [None]
  - INJECTION SITE PAIN [None]
